FAERS Safety Report 17816201 (Version 1)
Quarter: 2020Q2

REPORT INFORMATION
  Report Type: Spontaneous
  Country: US (occurrence: US)
  Receive Date: 20200522
  Receipt Date: 20200522
  Transmission Date: 20200714
  Serious: Yes (Death)
  Sender: FDA-Public Use
  Company Number: None

PATIENT
  Age: 80 Year
  Sex: Female
  Weight: 53 kg

DRUGS (1)
  1. REMDESIVIR UNDER EMERGENCY USE AUTHORIZATION (EUA) [Suspect]
     Active Substance: REMDESIVIR
     Indication: SARS-COV-2 TEST POSITIVE
     Dosage: ?          OTHER FREQUENCY:ONCE;?
     Route: 042

REACTIONS (5)
  - Dialysis [None]
  - Aspartate aminotransferase increased [None]
  - Metabolic acidosis [None]
  - Alanine aminotransferase increased [None]
  - Pneumonia viral [None]

NARRATIVE: CASE EVENT DATE: 20200518
